FAERS Safety Report 5942276-5 (Version None)
Quarter: 2008Q4

REPORT INFORMATION
  Report Type: 
  Country: None (occurrence: None)
  Receive Date: 20081105
  Receipt Date: 20081103
  Transmission Date: 20090506
  Serious: Yes (Other)
  Sender: FDA-Public Use
  Company Number: US-RB-005780-08

PATIENT
  Age: 20 Year
  Sex: Female

DRUGS (1)
  1. SUBOXONE [Suspect]
     Indication: DRUG DEPENDENCE
     Dosage: TAKES 1 TO 2 MG OF AN 8 MG TABLET DAILY
     Route: 060
     Dates: start: 20080101, end: 20081031

REACTIONS (2)
  - DRUG EXPOSURE DURING PREGNANCY [None]
  - PREMATURE SEPARATION OF PLACENTA [None]
